FAERS Safety Report 22151168 (Version 1)
Quarter: 2023Q1

REPORT INFORMATION
  Report Type: Spontaneous
  Country: RO (occurrence: RO)
  Receive Date: 20230329
  Receipt Date: 20230329
  Transmission Date: 20230417
  Serious: Yes (Other)
  Sender: FDA-Public Use
  Company Number: RO-AMGEN-ROUSP2023052127

PATIENT
  Age: 60 Year
  Sex: Male

DRUGS (8)
  1. VECTIBIX [Suspect]
     Active Substance: PANITUMUMAB
     Indication: Colorectal cancer metastatic
     Dosage: UNK Q2WK
     Route: 042
     Dates: start: 20220824
  2. VECTIBIX [Suspect]
     Active Substance: PANITUMUMAB
     Dosage: UNK Q2WK
     Route: 042
     Dates: start: 202302
  3. LEUCOVORIN [Suspect]
     Active Substance: LEUCOVORIN
     Indication: Colorectal cancer metastatic
     Dosage: UNK, Q2WK
     Route: 042
     Dates: start: 20220810
  4. LEUCOVORIN [Suspect]
     Active Substance: LEUCOVORIN
     Dosage: UNK, Q2WK
     Route: 042
     Dates: start: 20220824
  5. FLUOROURACIL [Suspect]
     Active Substance: FLUOROURACIL
     Indication: Colorectal cancer metastatic
     Dosage: UNK, Q2WK
     Route: 042
     Dates: start: 20220810
  6. FLUOROURACIL [Suspect]
     Active Substance: FLUOROURACIL
     Dosage: UNK, Q2WK
     Route: 042
     Dates: start: 20220824
  7. OXALIPLATIN [Suspect]
     Active Substance: OXALIPLATIN
     Indication: Colorectal cancer metastatic
     Dosage: UNK, Q2WK
     Route: 042
     Dates: start: 20220810
  8. OXALIPLATIN [Suspect]
     Active Substance: OXALIPLATIN
     Dosage: UNK, Q2WK
     Route: 042
     Dates: start: 20220824

REACTIONS (3)
  - Neuropathy peripheral [Unknown]
  - Dermatitis acneiform [Recovered/Resolved]
  - Therapy partial responder [Unknown]

NARRATIVE: CASE EVENT DATE: 20221201
